FAERS Safety Report 5863224-2 (Version None)
Quarter: 2008Q3

REPORT INFORMATION
  Report Type: 
  Country: None (occurrence: None)
  Receive Date: 20080828
  Receipt Date: 20080819
  Transmission Date: 20090109
  Serious: Yes (Other)
  Sender: FDA-Public Use
  Company Number: GB-ASTRAZENECA-2008GB01585

PATIENT
  Sex: Female

DRUGS (6)
  1. SEROQUEL [Suspect]
     Indication: BIPOLAR DISORDER
     Route: 048
     Dates: start: 20080101
  2. SEROQUEL [Suspect]
     Route: 048
     Dates: start: 20080601
  3. VALPROATE SODIUM [Concomitant]
  4. LEVOTHYROXINE [Concomitant]
  5. AMLODIPINE [Concomitant]
  6. ASPIRIN [Concomitant]

REACTIONS (1)
  - NEUTROPENIA [None]
